FAERS Safety Report 7568725-7 (Version None)
Quarter: 2011Q2

REPORT INFORMATION
  Report Type: 
  Country: None (occurrence: None)
  Receive Date: 20110617
  Receipt Date: 20110610
  Transmission Date: 20111010
  Serious: Yes (Hospitalization)
  Sender: FDA-Public Use
  Company Number: DKLU1070985

PATIENT
  Age: 8 Year
  Sex: Male

DRUGS (4)
  1. ONDANSETRON [Concomitant]
  2. VINCRISTINE SULFATE [Concomitant]
  3. DEXAMETHASONE [Concomitant]
  4. ELSPAR [Suspect]
     Indication: LEUKAEMIA
     Dosage: DAILY, INTRAMUSCULAR
     Route: 030
     Dates: start: 20110511

REACTIONS (2)
  - RASH [None]
  - HYPERAEMIA [None]
